FAERS Safety Report 8789877 (Version 1)
Quarter: 2012Q4

REPORT INFORMATION
  Report Type: 
  Country: US (occurrence: US)
  Receive Date: 20120917
  Receipt Date: 20120917
  Transmission Date: 20130627
  Serious: Yes (Other)
  Sender: FDA-Public Use
  Company Number: US-PFIZER INC-2012225177

PATIENT
  Sex: Female

DRUGS (2)
  1. LYRICA [Suspect]
     Indication: BACK DISORDER
     Dosage: UNK
     Dates: start: 201209
  2. LYRICA [Suspect]
     Indication: SPINAL DISORDER

REACTIONS (2)
  - Cardiac flutter [Unknown]
  - Dyspnoea [Unknown]
